FAERS Safety Report 19144761 (Version 1)
Quarter: 2021Q2

REPORT INFORMATION
  Report Type: Spontaneous
  Country: US (occurrence: US)
  Receive Date: 20210415
  Receipt Date: 20210415
  Transmission Date: 20210717
  Serious: Yes (Other)
  Sender: FDA-Public Use
  Company Number: None

PATIENT
  Age: 22 Year
  Sex: Female
  Weight: 54 kg

DRUGS (1)
  1. LEVOFLOXACIN. [Suspect]
     Active Substance: LEVOFLOXACIN
     Indication: INFECTION
     Route: 048
     Dates: start: 20210413, end: 20210414

REACTIONS (5)
  - Palpitations [None]
  - Documented hypersensitivity to administered product [None]
  - Reaction to colouring [None]
  - Feeling hot [None]
  - Drug monitoring procedure not performed [None]

NARRATIVE: CASE EVENT DATE: 20210414
